FAERS Safety Report 9335785 (Version 4)
Quarter: 2013Q3

REPORT INFORMATION
  Report Type: Report from Study
  Country: US (occurrence: US)
  Receive Date: 20130607
  Receipt Date: 20130807
  Transmission Date: 20140515
  Serious: Yes (Hospitalization)
  Sender: FDA-Public Use
  Company Number: US-ROCHE-1192418

PATIENT
  Age: 56 Year
  Sex: Male

DRUGS (3)
  1. PEGASYS [Suspect]
     Indication: CHRONIC HEPATITIS C
     Route: 058
     Dates: start: 20130215
  2. RIBASPHERE [Suspect]
     Indication: CHRONIC HEPATITIS C
     Dosage: DAILY IN DIVIDED DOSES
     Route: 048
     Dates: start: 20130215
  3. INCIVEK [Suspect]
     Indication: CHRONIC HEPATITIS C
     Route: 065
     Dates: start: 20130215, end: 20130501

REACTIONS (18)
  - Pancreatitis [Unknown]
  - Cholelithiasis [Unknown]
  - Influenza like illness [Not Recovered/Not Resolved]
  - Decreased appetite [Unknown]
  - Cough [Unknown]
  - Dysgeusia [Unknown]
  - Pyrexia [Not Recovered/Not Resolved]
  - Dyspnoea [Unknown]
  - Musculoskeletal chest pain [Unknown]
  - Cholecystitis [Unknown]
  - Aggression [Unknown]
  - Skin discolouration [Recovering/Resolving]
  - Blister [Unknown]
  - Oedema peripheral [Unknown]
  - Blister rupture [Unknown]
  - Thrombosis [Unknown]
  - White blood cell count decreased [Unknown]
  - Platelet count decreased [Unknown]
